FAERS Safety Report 16021790 (Version 1)
Quarter: 2019Q1

REPORT INFORMATION
  Report Type: Spontaneous
  Country: US (occurrence: US)
  Receive Date: 20190301
  Receipt Date: 20190301
  Transmission Date: 20190418
  Serious: No
  Sender: FDA-Public Use
  Company Number: None

PATIENT
  Age: 28 Year
  Sex: Female
  Weight: 67.5 kg

DRUGS (2)
  1. ZOFRAN [Suspect]
     Active Substance: ONDANSETRON HYDROCHLORIDE
     Indication: NAUSEA
     Route: 042
     Dates: start: 20190223, end: 20190301
  2. DULOXOTINE 60MG ER [Concomitant]
     Active Substance: DULOXETINE

REACTIONS (3)
  - Skin odour abnormal [None]
  - Night sweats [None]
  - Hyperhidrosis [None]

NARRATIVE: CASE EVENT DATE: 20190224
